FAERS Safety Report 4377559-6 (Version None)
Quarter: 2004Q2

REPORT INFORMATION
  Report Type: 
  Country: None (occurrence: None)
  Receive Date: 20040608
  Receipt Date: 20040424
  Transmission Date: 20050107
  Serious: Yes (Hospitalization)
  Sender: FDA-Public Use
  Company Number: 2004CG00975

PATIENT
  Age: 71 Year
  Sex: Female

DRUGS (4)
  1. ZESTORETIC [Suspect]
     Dosage: 20 + 12.5 MG
     Dates: start: 19990101, end: 20040212
  2. ZESTORETIC [Suspect]
     Dosage: 20 + 12.5 MG
     Dates: start: 20040301
  3. MEDIATOR [Concomitant]
  4. LEVOTHYROXINE SODIUM [Concomitant]

REACTIONS (3)
  - AUTOIMMUNE DISORDER [None]
  - AUTOIMMUNE HEPATITIS [None]
  - CHOLANGITIS [None]
